FAERS Safety Report 7021087-6 (Version None)
Quarter: 2010Q3

REPORT INFORMATION
  Report Type: 
  Country: None (occurrence: None)
  Receive Date: 20100929
  Receipt Date: 20100917
  Transmission Date: 20110219
  Serious: Yes (Other)
  Sender: FDA-Public Use
  Company Number: US-PFIZER INC-2010118938

PATIENT
  Sex: Male
  Weight: 74.83 kg

DRUGS (4)
  1. ZOLOFT [Suspect]
     Indication: MAJOR DEPRESSION
     Dosage: 100 MG, 1X/DAY
     Route: 048
     Dates: start: 20030101, end: 20100901
  2. WELLBUTRIN [Concomitant]
     Indication: DEPRESSION
     Dosage: UNK
  3. HALDOL [Concomitant]
     Indication: DEPRESSION
     Dosage: UNK
  4. ATRIPLA [Concomitant]
     Indication: HIV INFECTION
     Dosage: UNK

REACTIONS (3)
  - ANGER [None]
  - DIZZINESS [None]
  - LOSS OF CONSCIOUSNESS [None]
